FAERS Safety Report 12976890 (Version 3)
Quarter: 2016Q4

REPORT INFORMATION
  Report Type: Report from Study
  Country: IE (occurrence: IE)
  Receive Date: 20161128
  Receipt Date: 20161202
  Transmission Date: 20170207
  Serious: Yes (Death)
  Sender: FDA-Public Use
  Company Number: PHFR2016IE009302

PATIENT
  Age: 64 Year
  Sex: Male

DRUGS (1)
  1. TRAMETINIB [Suspect]
     Active Substance: TRAMETINIB
     Indication: METASTATIC MALIGNANT MELANOMA
     Dosage: 2 MG, UNK
     Route: 048
     Dates: start: 201601, end: 20160829

REACTIONS (2)
  - Malignant neoplasm progression [Fatal]
  - Intracranial meningioma malignant [Fatal]

NARRATIVE: CASE EVENT DATE: 20160929
